APPROVED DRUG PRODUCT: POTASSIUM CHLORIDE
Active Ingredient: POTASSIUM CHLORIDE
Strength: 15MEQ
Dosage Form/Route: TABLET, EXTENDED RELEASE;ORAL
Application: A215725 | Product #003
Applicant: RUBICON RESEARCH LTD
Approved: Aug 22, 2024 | RLD: No | RS: Yes | Type: RX